FAERS Safety Report 13473645 (Version 1)
Quarter: 2017Q2

REPORT INFORMATION
  Report Type: Spontaneous
  Country: US (occurrence: US)
  Receive Date: 20170424
  Receipt Date: 20170424
  Transmission Date: 20170830
  Serious: No
  Sender: FDA-Public Use
  Company Number: US-009507513-1704USA004176

PATIENT
  Age: 41 Year
  Sex: Female

DRUGS (1)
  1. GANIRELIX ACETATE INJECTION [Suspect]
     Active Substance: GANIRELIX ACETATE
     Indication: OVULATION DISORDER
     Dosage: 1 DF, ONCE
     Route: 058
     Dates: start: 20170406

REACTIONS (2)
  - Incorrect product storage [Unknown]
  - Injection site pain [Unknown]

NARRATIVE: CASE EVENT DATE: 20170406
